FAERS Safety Report 20167674 (Version 2)
Quarter: 2022Q1

REPORT INFORMATION
  Report Type: Spontaneous
  Country: US (occurrence: None)
  Receive Date: 20211209
  Receipt Date: 20220105
  Transmission Date: 20220424
  Serious: No
  Sender: FDA-Public Use
  Company Number: 2021A816902

PATIENT
  Age: 20180 Day
  Sex: Female
  Weight: 83.5 kg

DRUGS (1)
  1. SYMBICORT [Suspect]
     Active Substance: BUDESONIDE\FORMOTEROL FUMARATE DIHYDRATE
     Indication: Asthma
     Dosage: 160MCG/4.5MCG; TWO TIMES A DAY
     Route: 055

REACTIONS (5)
  - Feeling abnormal [Unknown]
  - Bronchitis [Unknown]
  - Rhinorrhoea [Unknown]
  - Multiple allergies [Unknown]
  - Device leakage [Unknown]

NARRATIVE: CASE EVENT DATE: 20211118
